FAERS Safety Report 9761301 (Version 4)
Quarter: 2014Q2

REPORT INFORMATION
  Report Type: Report from Study
  Country: JP (occurrence: JP)
  Receive Date: 20131216
  Receipt Date: 20140416
  Transmission Date: 20141212
  Serious: Yes (Life-Threatening, Hospitalization, Other)
  Sender: FDA-Public Use
  Company Number: JP-SANOFI-AVENTIS-2013SA092442

PATIENT
  Age: 24 Month
  Sex: Female

DRUGS (16)
  1. EVOLTRA [Suspect]
     Indication: ACUTE LYMPHOCYTIC LEUKAEMIA RECURRENT
     Route: 042
     Dates: start: 20131003, end: 20131007
  2. EVOLTRA [Suspect]
     Indication: ACUTE LYMPHOCYTIC LEUKAEMIA RECURRENT
     Route: 042
     Dates: start: 20130716, end: 20130720
  3. EVOLTRA [Suspect]
     Indication: ACUTE LYMPHOCYTIC LEUKAEMIA RECURRENT
     Route: 042
     Dates: start: 20130802, end: 20130806
  4. EVOLTRA [Suspect]
     Indication: ACUTE LYMPHOCYTIC LEUKAEMIA RECURRENT
     Route: 042
     Dates: start: 20130819, end: 20130823
  5. EVOLTRA [Suspect]
     Indication: ACUTE LYMPHOCYTIC LEUKAEMIA RECURRENT
     Route: 042
     Dates: start: 20130903, end: 20130907
  6. EVOLTRA [Suspect]
     Indication: ACUTE LYMPHOCYTIC LEUKAEMIA RECURRENT
     Route: 042
     Dates: start: 20130917, end: 20130921
  7. TARGOCID [Suspect]
     Indication: ACUTE LYMPHOCYTIC LEUKAEMIA RECURRENT
     Route: 042
     Dates: start: 20130917, end: 20130923
  8. TARGOCID [Suspect]
     Indication: ACUTE LYMPHOCYTIC LEUKAEMIA RECURRENT
     Route: 042
     Dates: start: 20130924, end: 20131008
  9. MEROPENEM [Suspect]
     Indication: PRODUCT USED FOR UNKNOWN INDICATION
     Route: 065
  10. ONCOVIN [Concomitant]
     Indication: ACUTE LYMPHOCYTIC LEUKAEMIA RECURRENT
     Dosage: 0.4 MG/BODY, WEEKLY
     Route: 042
     Dates: start: 20130926, end: 20131003
  11. DECADRON [Concomitant]
     Indication: ACUTE LYMPHOCYTIC LEUKAEMIA RECURRENT
     Dosage: 1.65 MG/BODY DAILY
     Route: 042
     Dates: start: 20130716, end: 20130720
  12. DECADRON [Concomitant]
     Indication: ACUTE LYMPHOCYTIC LEUKAEMIA RECURRENT
     Dosage: 1.65 MG/BODY, DAILY
     Route: 042
     Dates: start: 20130917, end: 20130921
  13. DECADRON [Concomitant]
     Indication: ACUTE LYMPHOCYTIC LEUKAEMIA RECURRENT
     Dosage: 1.65 MG/BODY DAILY
     Route: 042
     Dates: start: 20131003, end: 20131007
  14. SOLU-CORTEF [Concomitant]
     Indication: ACUTE LYMPHOCYTIC LEUKAEMIA RECURRENT
     Dosage: 40 MG/BODY DAILY
     Route: 042
     Dates: start: 20130716, end: 20130720
  15. SOLU-CORTEF [Concomitant]
     Indication: ACUTE LYMPHOCYTIC LEUKAEMIA RECURRENT
     Dosage: 40 MG/BODY DAILY
     Route: 042
     Dates: start: 20130917, end: 20130921
  16. SOLU-CORTEF [Concomitant]
     Indication: ACUTE LYMPHOCYTIC LEUKAEMIA RECURRENT
     Dosage: 40 MG/BODY DAILY
     Route: 042
     Dates: start: 20131003, end: 20131007

REACTIONS (5)
  - Renal failure acute [Not Recovered/Not Resolved]
  - Hepatotoxicity [Not Recovered/Not Resolved]
  - Haematuria [Not Recovered/Not Resolved]
  - Neutropenia [Recovered/Resolved]
  - Hypertension [Not Recovered/Not Resolved]
